FAERS Safety Report 8111400-0 (Version None)
Quarter: 2012Q1

REPORT INFORMATION
  Report Type: 
  Country: None (occurrence: None)
  Receive Date: 20120203
  Receipt Date: 20111104
  Transmission Date: 20120608
  Serious: No
  Sender: FDA-Public Use
  Company Number: US-GLAXOSMITHKLINE-A0952493A

PATIENT
  Age: 57 Year
  Sex: Female

DRUGS (2)
  1. LAMICTAL [Suspect]
     Indication: DEPRESSION
     Dosage: 50MG PER DAY
     Route: 048
     Dates: start: 20111001, end: 20111101
  2. WELLBUTRIN [Suspect]
     Indication: DEPRESSION
     Dosage: 200MG PER DAY
     Dates: start: 20080101

REACTIONS (7)
  - SWOLLEN TONGUE [None]
  - ORAL MUCOSAL ERUPTION [None]
  - DRY MOUTH [None]
  - DRUG INTERACTION [None]
  - DYSPHAGIA [None]
  - APHTHOUS STOMATITIS [None]
  - STOMATITIS [None]
